FAERS Safety Report 21372527 (Version 2)
Quarter: 2022Q4

REPORT INFORMATION
  Report Type: Spontaneous
  Country: JP (occurrence: JP)
  Receive Date: 20220924
  Receipt Date: 20221012
  Transmission Date: 20230112
  Serious: Yes (Death)
  Sender: FDA-Public Use
  Company Number: JP-JNJFOC-20220938242

PATIENT
  Age: 58 Year
  Sex: Female

DRUGS (5)
  1. TRACLEER [Suspect]
     Active Substance: BOSENTAN
     Indication: Skin ulcer
     Dosage: BOSENTAN HYDRATE:62.5MG
     Route: 048
  2. SARPOGRELATE HYDROCHLORIDE [Suspect]
     Active Substance: SARPOGRELATE HYDROCHLORIDE
     Indication: Product used for unknown indication
     Route: 048
  3. WARFARIN [Suspect]
     Active Substance: WARFARIN
     Indication: Product used for unknown indication
     Route: 048
  4. ALPROSTADIL [Suspect]
     Active Substance: ALPROSTADIL
     Indication: Product used for unknown indication
     Route: 065
  5. ARGATROBAN [Suspect]
     Active Substance: ARGATROBAN
     Indication: Product used for unknown indication
     Route: 065

REACTIONS (1)
  - Cardiac failure [Fatal]
